FAERS Safety Report 12541059 (Version 2)
Quarter: 2016Q3

REPORT INFORMATION
  Report Type: Report from Study
  Country: US (occurrence: US)
  Receive Date: 20160708
  Receipt Date: 20160801
  Transmission Date: 20161109
  Serious: Yes (Other)
  Sender: FDA-Public Use
  Company Number: US-BAYER-2016-106444

PATIENT
  Age: 65 Year
  Sex: Male

DRUGS (2)
  1. STIVARGA [Suspect]
     Active Substance: REGORAFENIB
     Indication: COLORECTAL CANCER
     Dosage: 120 MG, QD (DAILY DOSE)
     Route: 048
     Dates: start: 20160522, end: 20160527
  2. STIVARGA [Suspect]
     Active Substance: REGORAFENIB
     Indication: COLORECTAL CANCER
     Dosage: 120 MG, QD
     Route: 048
     Dates: start: 20160628, end: 20160710

REACTIONS (11)
  - Dyspnoea [None]
  - Visual impairment [None]
  - Drug ineffective [None]
  - Impaired work ability [None]
  - Dysstasia [None]
  - Dry skin [None]
  - Blister [None]
  - Skin induration [None]
  - Erythema [None]
  - Burning sensation [None]
  - Pain in extremity [Recovered/Resolved]

NARRATIVE: CASE EVENT DATE: 2016
